FAERS Safety Report 7011366 (Version 7)
Quarter: 2015Q4

REPORT INFORMATION
  Report Type: Spontaneous
  Country: US (occurrence: US)
  Receive Date: 20090604
  Receipt Date: 20151212
  Transmission Date: 20160305
  Serious: Yes (Hospitalization, Other)
  Sender: FDA-Public Use
  Company Number: US-ASTRAZENECA-2008UW24106

PATIENT
  Age: 65 Year
  Sex: Female
  Weight: 84.4 kg

DRUGS (20)
  1. GENERIC PERCOCET [Suspect]
     Active Substance: ACETAMINOPHEN\OXYCODONE HYDROCHLORIDE
     Route: 065
  2. XANAX [Concomitant]
     Active Substance: ALPRAZOLAM
     Indication: ANXIETY
     Route: 048
     Dates: start: 1997
  3. COUMADIN [Concomitant]
     Active Substance: WARFARIN SODIUM
     Indication: ATRIAL FIBRILLATION
     Route: 048
     Dates: start: 2008
  4. BACTRIM [Concomitant]
     Active Substance: SULFAMETHOXAZOLE\TRIMETHOPRIM
     Indication: HELICOBACTER INFECTION
     Dates: start: 2008
  5. TUDORZA PRESSAIR [Suspect]
     Active Substance: ACLIDINIUM BROMIDE
     Indication: CHRONIC OBSTRUCTIVE PULMONARY DISEASE
     Route: 055
     Dates: start: 2015
  6. PRILOSEC [Suspect]
     Active Substance: OMEPRAZOLE MAGNESIUM
     Indication: HELICOBACTER INFECTION
     Route: 048
     Dates: start: 1998, end: 1998
  7. TUDORZA PRESSAIR [Suspect]
     Active Substance: ACLIDINIUM BROMIDE
     Indication: CHRONIC OBSTRUCTIVE PULMONARY DISEASE
     Route: 055
     Dates: start: 201502
  8. TYLENOL [Concomitant]
     Active Substance: ACETAMINOPHEN
     Indication: KNEE ARTHROPLASTY
     Dosage: AS REQUIERD
     Route: 048
     Dates: start: 1998
  9. ZANTAC [Concomitant]
     Active Substance: RANITIDINE HYDROCHLORIDE
     Indication: GASTROOESOPHAGEAL REFLUX DISEASE
     Route: 048
  10. PRILOSEC [Suspect]
     Active Substance: OMEPRAZOLE MAGNESIUM
     Indication: HELICOBACTER INFECTION
     Route: 048
     Dates: start: 2008
  11. TOPROL XL [Suspect]
     Active Substance: METOPROLOL SUCCINATE
     Indication: HYPERTENSION
     Route: 048
     Dates: start: 2008
  12. BIAXIN [Suspect]
     Active Substance: CLARITHROMYCIN
     Indication: HELICOBACTER INFECTION
     Route: 065
     Dates: start: 1998
  13. NEXIUM [Suspect]
     Active Substance: ESOMEPRAZOLE MAGNESIUM
     Indication: DYSPEPSIA
     Route: 048
  14. TOPROL XL [Suspect]
     Active Substance: METOPROLOL SUCCINATE
     Indication: HYPERTENSION
     Route: 048
  15. TOPROL XL [Suspect]
     Active Substance: METOPROLOL SUCCINATE
     Indication: HYPERTENSION
     Dosage: 200-300 MG/DAY
     Route: 048
  16. XANAX [Concomitant]
     Active Substance: ALPRAZOLAM
     Indication: SLEEP DISORDER
     Route: 048
     Dates: start: 1997
  17. COUMADIN [Concomitant]
     Active Substance: WARFARIN SODIUM
     Indication: CARDIAC DISORDER
     Route: 048
     Dates: start: 2008
  18. GAS-X [Concomitant]
     Active Substance: DIMETHICONE
     Indication: GASTROINTESTINAL DISORDER
     Dosage: AS REQUIRED
     Route: 048
  19. ASPIRIN. [Suspect]
     Active Substance: ASPIRIN
     Route: 048
  20. MIRALAX [Concomitant]
     Active Substance: POLYETHYLENE GLYCOL 3350

REACTIONS (33)
  - Parathyroid tumour [Unknown]
  - Musculoskeletal discomfort [Unknown]
  - Pain [Unknown]
  - Thinking abnormal [Unknown]
  - Drug hypersensitivity [Unknown]
  - Breast cancer female [Unknown]
  - Gastrointestinal disorder [Unknown]
  - Adverse event [Unknown]
  - Memory impairment [Unknown]
  - Neuropathy peripheral [Unknown]
  - Rash erythematous [Recovered/Resolved]
  - Abdominal adhesions [Recovered/Resolved]
  - Dyspepsia [Unknown]
  - Tachycardia [Unknown]
  - Atrial flutter [Unknown]
  - Anaphylactic reaction [Recovered/Resolved]
  - Chronic obstructive pulmonary disease [Unknown]
  - Chest pain [Unknown]
  - Atrial fibrillation [Unknown]
  - Lung disorder [Unknown]
  - Constipation [Unknown]
  - Abdominal discomfort [Unknown]
  - Neoplasm malignant [Unknown]
  - Urticaria [Unknown]
  - Medical device complication [Unknown]
  - Device failure [Unknown]
  - Basal cell carcinoma [Unknown]
  - Allergy to animal [Unknown]
  - Unevaluable event [Unknown]
  - Intentional product misuse [Unknown]
  - Product quality issue [Unknown]
  - Musculoskeletal stiffness [Unknown]
  - Nerve compression [Unknown]

NARRATIVE: CASE EVENT DATE: 1998
